FAERS Safety Report 9927487 (Version 1)
Quarter: 2014Q1

REPORT INFORMATION
  Report Type: Report from Study
  Country: UY (occurrence: UY)
  Receive Date: 20140227
  Receipt Date: 20140227
  Transmission Date: 20141002
  Serious: Yes (Hospitalization)
  Sender: FDA-Public Use
  Company Number: UY-ROCHE-1352884

PATIENT
  Sex: Female

DRUGS (3)
  1. XENICAL [Suspect]
     Indication: PRODUCT USED FOR UNKNOWN INDICATION
     Route: 048
  2. CLONAZEPAM [Concomitant]
     Indication: DEPRESSION
     Route: 065
  3. ENALAPRIL [Concomitant]
     Indication: DEPRESSION

REACTIONS (3)
  - Renal failure [Unknown]
  - Gastroenteritis [Not Recovered/Not Resolved]
  - Immunodeficiency [Not Recovered/Not Resolved]
